FAERS Safety Report 8231212-7 (Version None)
Quarter: 2012Q1

REPORT INFORMATION
  Report Type: 
  Country: None (occurrence: None)
  Receive Date: 20120323
  Receipt Date: 20120323
  Transmission Date: 20120608
  Serious: No
  Sender: FDA-Public Use
  Company Number: None

PATIENT
  Age: 17 Year
  Sex: Female
  Weight: 63.502 kg

DRUGS (1)
  1. NORGESTIMATE AND ETHINYL ESTRADIOL [Suspect]
     Indication: MENORRHAGIA
     Dosage: 1 TABLET
     Route: 048
     Dates: start: 20120303, end: 20120313

REACTIONS (5)
  - ANXIETY [None]
  - ACNE [None]
  - PRODUCT SUBSTITUTION ISSUE [None]
  - ECZEMA [None]
  - DEPRESSION [None]
